FAERS Safety Report 5336305-X (Version None)
Quarter: 2007Q2

REPORT INFORMATION
  Report Type: 
  Country: None (occurrence: None)
  Receive Date: 20070522
  Receipt Date: 20070513
  Transmission Date: 20071010
  Serious: Yes (Disabling)
  Sender: FDA-Public Use
  Company Number: 230002M07CZE

PATIENT
  Age: 32 Year
  Sex: Male
  Weight: 80 kg

DRUGS (5)
  1. REBIF [Suspect]
     Indication: MULTIPLE SCLEROSIS
     Dosage: 44, 3 IN 1 WEEKS
     Dates: start: 20030401
  2. PREDNISONE [Suspect]
     Indication: MULTIPLE SCLEROSIS
     Dosage: 5 MG, 3 IN 1 WEEKS
     Dates: start: 20030101, end: 20060801
  3. IMURFAN (AZATHIOPRINE) [Concomitant]
  4. VITAMIDYNE A AND D [Concomitant]
  5. CALCIUM SANDOZ /00009901/ [Concomitant]

REACTIONS (1)
  - OSTEONECROSIS [None]
